FAERS Safety Report 6446206-1 (Version None)
Quarter: 2009Q4

REPORT INFORMATION
  Report Type: 
  Country: None (occurrence: None)
  Receive Date: 20091119
  Receipt Date: 20091112
  Transmission Date: 20100525
  Serious: Yes (Other)
  Sender: FDA-Public Use
  Company Number: DE-JNJFOC-20091103584

PATIENT
  Age: 46 Year
  Sex: Male

DRUGS (18)
  1. RISPERDAL CONSTA [Suspect]
     Route: 030
     Dates: start: 20090622
  2. RISPERDAL CONSTA [Suspect]
     Indication: DRUG USE FOR UNKNOWN INDICATION
     Route: 030
     Dates: start: 20090622
  3. SEROQUEL [Suspect]
     Route: 048
     Dates: start: 20090624, end: 20090710
  4. SEROQUEL [Suspect]
     Route: 048
     Dates: start: 20090624, end: 20090710
  5. SEROQUEL [Suspect]
     Route: 048
     Dates: start: 20090624, end: 20090710
  6. SEROQUEL [Suspect]
     Route: 048
     Dates: start: 20090624, end: 20090710
  7. SEROQUEL [Suspect]
     Route: 048
     Dates: start: 20090624, end: 20090710
  8. SEROQUEL [Suspect]
     Indication: DRUG USE FOR UNKNOWN INDICATION
     Route: 048
     Dates: start: 20090624, end: 20090710
  9. DIAZEPAM [Suspect]
     Route: 048
     Dates: start: 20090625, end: 20090727
  10. DIAZEPAM [Suspect]
     Route: 048
     Dates: start: 20090625, end: 20090727
  11. DIAZEPAM [Suspect]
     Route: 048
     Dates: start: 20090625, end: 20090727
  12. DIAZEPAM [Suspect]
     Indication: DRUG USE FOR UNKNOWN INDICATION
     Route: 048
     Dates: start: 20090625, end: 20090727
  13. ERGENYL [Concomitant]
     Route: 048
     Dates: start: 20060625
  14. ERGENYL [Concomitant]
     Route: 048
     Dates: start: 20060625
  15. ERGENYL [Concomitant]
     Route: 048
     Dates: start: 20060625
  16. ERGENYL [Concomitant]
     Route: 048
     Dates: start: 20060625
  17. ERGENYL [Concomitant]
     Route: 048
     Dates: start: 20060625
  18. PANTOZOL [Concomitant]
     Route: 048
     Dates: start: 20090626

REACTIONS (3)
  - CONSTIPATION [None]
  - URINARY RETENTION [None]
  - URINARY TRACT INFECTION [None]
